FAERS Safety Report 8545174-6 (Version None)
Quarter: 2012Q3

REPORT INFORMATION
  Report Type: 
  Country: None (occurrence: None)
  Receive Date: 20120727
  Receipt Date: 20120724
  Transmission Date: 20120928
  Serious: Yes (Death)
  Sender: FDA-Public Use
  Company Number: IL-ROCHE-791672

PATIENT
  Sex: Male

DRUGS (9)
  1. VABEN [Concomitant]
     Indication: ANXIETY
  2. INSULIN [Concomitant]
     Indication: DIABETES MELLITUS
  3. LYRICA [Concomitant]
     Indication: NEUROPATHY PERIPHERAL
  4. FUROSEMIDE [Concomitant]
     Indication: HYPERTENSION
  5. VASODIP [Concomitant]
     Indication: HYPERTENSION
  6. DIMITONE [Concomitant]
  7. MIRCERA [Suspect]
     Indication: ANAEMIA
     Dosage: FREQUENCY REPORTED ONCE
     Route: 042
     Dates: start: 20110703, end: 20110703
  8. CALCIUM CARBONATE [Concomitant]
     Indication: RENAL FAILURE CHRONIC
  9. PAROXETINE HCL [Concomitant]
     Indication: PERIPHERAL VASCULAR DISORDER

REACTIONS (1)
  - DEATH [None]
